FAERS Safety Report 8477964-2 (Version None)
Quarter: 2012Q2

REPORT INFORMATION
  Report Type: 
  Country: None (occurrence: None)
  Receive Date: 20120629
  Receipt Date: 20120625
  Transmission Date: 20120825
  Serious: Yes (Death)
  Sender: FDA-Public Use
  Company Number: FR-BRISTOL-MYERS SQUIBB COMPANY-16712358

PATIENT
  Age: 76 Year
  Sex: Female

DRUGS (9)
  1. AMIODARONE HYDROCHLORIDE [Suspect]
     Route: 048
     Dates: end: 20120417
  2. LAMOTRIGINE [Suspect]
     Route: 048
     Dates: end: 20120417
  3. PENTOXIFYLLINE [Suspect]
     Indication: ATRIAL FIBRILLATION
     Dosage: 1DF=0.75UNITS NOT SPECIFIED 0.75/D ALTERNATING WITH 0.5/D IS ALSO TKN PRODUCT STRENGTH IS 20MG TAB
     Dates: end: 20120417
  4. CRESTOR [Suspect]
     Route: 048
     Dates: end: 20120417
  5. PENTOXIFYLLINE [Suspect]
     Indication: ISCHAEMIC STROKE
     Dosage: 1DF=0.75UNITS NOT SPECIFIED 0.75/D ALTERNATING WITH 0.5/D IS ALSO TKN PRODUCT STRENGTH IS 20MG TAB
     Dates: end: 20120417
  6. IRBESARTAN [Suspect]
     Dosage: 1 DF: TAB
     Dates: end: 20120417
  7. ACETAMINOPHEN [Concomitant]
     Route: 048
  8. PAROXETINE HCL [Suspect]
     Route: 048
     Dates: end: 20120417
  9. XANAX [Suspect]
     Route: 048
     Dates: end: 20120417

REACTIONS (2)
  - CEREBRAL HAEMORRHAGE [None]
  - COMA [None]
